FAERS Safety Report 17662556 (Version 1)
Quarter: 2020Q2

REPORT INFORMATION
  Report Type: Spontaneous
  Country: US (occurrence: US)
  Receive Date: 20200413
  Receipt Date: 20200413
  Transmission Date: 20200713
  Serious: No
  Sender: FDA-Public Use
  Company Number: US-ASTRAZENECA-2020SE45085

PATIENT
  Age: 3120 Week
  Sex: Female
  Weight: 127 kg

DRUGS (2)
  1. BYDUREON BCISE [Suspect]
     Active Substance: EXENATIDE
     Indication: DIABETES MELLITUS
     Route: 058
     Dates: start: 20200106
  2. BYDUREON BCISE [Suspect]
     Active Substance: EXENATIDE
     Indication: GLYCOSYLATED HAEMOGLOBIN INCREASED
     Route: 058
     Dates: start: 20200106

REACTIONS (4)
  - Drug delivery system issue [Unknown]
  - Device leakage [Unknown]
  - Injection site mass [Unknown]
  - Product dose omission [Unknown]

NARRATIVE: CASE EVENT DATE: 20200316
